FAERS Safety Report 4376824-6 (Version None)
Quarter: 2004Q2

REPORT INFORMATION
  Report Type: 
  Country: None (occurrence: None)
  Receive Date: 20040609
  Receipt Date: 20040422
  Transmission Date: 20050107
  Serious: Yes (Hospitalization, Other)
  Sender: FDA-Public Use
  Company Number: PHEH2004US04032

PATIENT
  Age: 71 Year
  Sex: Female
  Weight: 65.8 kg

DRUGS (7)
  1. GLEEVEC [Suspect]
     Indication: CHRONIC MYELOID LEUKAEMIA
     Dosage: 400 MG, QD, ORAL
     Route: 048
     Dates: start: 20040318, end: 20040413
  2. HYDROCHLOROTHIAZIDE [Suspect]
     Indication: HYPERTENSION
     Dosage: 25 MG, QD, ORAL
     Route: 048
     Dates: end: 20040414
  3. LISINOPRIL [Suspect]
     Indication: HYPERTENSION
     Dosage: 20 MG, QD, ORAL
     Route: 048
     Dates: end: 20040414
  4. SYNTHROID [Concomitant]
  5. ASPIRIN [Concomitant]
  6. VITAMIN C [Concomitant]
  7. VITAMIN E [Concomitant]

REACTIONS (6)
  - BLOOD CREATININE INCREASED [None]
  - BLOOD PHOSPHORUS INCREASED [None]
  - BLOOD URIC ACID INCREASED [None]
  - HYPONATRAEMIA [None]
  - OEDEMA PERIPHERAL [None]
  - TUMOUR LYSIS SYNDROME [None]
